FAERS Safety Report 6716495-4 (Version None)
Quarter: 2010Q2

REPORT INFORMATION
  Report Type: 
  Country: None (occurrence: None)
  Receive Date: 20100507
  Receipt Date: 20100426
  Transmission Date: 20101027
  Serious: Yes (Death, Hospitalization, Other)
  Sender: FDA-Public Use
  Company Number: BR-ELI_LILLY_AND_COMPANY-BR201004007581

PATIENT
  Sex: Female
  Weight: 30 kg

DRUGS (6)
  1. FORTEO [Suspect]
     Indication: OSTEOPOROSIS
     Dosage: UNK, DAILY (1/D)
     Route: 058
     Dates: end: 20100416
  2. LISINOPRIL [Concomitant]
     Dosage: 10 MG, UNK
  3. GABAPENTINA [Concomitant]
     Dosage: 300 MG, DAILY (1/D)
  4. DOMPERIDONA [Concomitant]
     Dosage: 10 MG, 3/D
  5. CALCIUM PHOSPHATE W/COLECALCIFEROL [Concomitant]
     Dosage: UNK, DAILY (1/D)
  6. FORASEQ [Concomitant]
     Dosage: UNK, DAILY (1/D)

REACTIONS (2)
  - BILE DUCT CANCER [None]
  - HEPATIC NEOPLASM [None]
